FAERS Safety Report 9199725 (Version 2)
Quarter: 2013Q2

REPORT INFORMATION
  Report Type: Report from Study
  Country: US (occurrence: CA)
  Receive Date: 20130329
  Receipt Date: 20130410
  Transmission Date: 20140414
  Serious: Yes (Hospitalization)
  Sender: FDA-Public Use
  Company Number: US-PFIZER INC-2013094938

PATIENT
  Age: 47 Year
  Sex: Male
  Weight: 81 kg

DRUGS (6)
  1. CISPLATIN [Suspect]
     Indication: METASTATIC SQUAMOUS CELL CARCINOMA
     Dosage: 100 MG/M2, ON DAY ONE
     Route: 042
     Dates: start: 20121220, end: 20130131
  2. FLUOROURACIL [Suspect]
     Indication: METASTATIC SQUAMOUS CELL CARCINOMA
     Dosage: 1000 MG/M2, ON DAYS ONE TO FOUR
     Route: 042
     Dates: start: 20121220, end: 20130131
  3. BLINDED THERAPY [Suspect]
     Indication: METASTATIC SQUAMOUS CELL CARCINOMA
     Dosage: UNK, WEEKLY
     Route: 042
     Dates: start: 20121220, end: 20121220
  4. BLINDED THERAPY [Suspect]
     Dosage: WEEKLY
     Route: 042
     Dates: end: 20130214
  5. INNOHEP [Concomitant]
     Indication: ANTICOAGULANT THERAPY
     Dosage: UNK
     Dates: start: 20121210
  6. ZANTAC [Concomitant]
     Indication: DYSPEPSIA
     Dosage: UNK
     Dates: start: 20130208

REACTIONS (1)
  - Pleural effusion [Recovered/Resolved]
